FAERS Safety Report 6409115-X (Version None)
Quarter: 2009Q4

REPORT INFORMATION
  Report Type: 
  Country: None (occurrence: None)
  Receive Date: 20091021
  Receipt Date: 20091006
  Transmission Date: 20100525
  Serious: Yes (Disabling, Other)
  Sender: FDA-Public Use
  Company Number: PHHY2008FR10110

PATIENT
  Age: 60 Year
  Sex: Male

DRUGS (4)
  1. DESFERAL [Suspect]
     Indication: MYELODYSPLASTIC SYNDROME
     Dosage: UNK
     Route: 042
     Dates: start: 20020101, end: 20080101
  2. DESFERAL [Suspect]
     Indication: IRON OVERLOAD
     Dosage: 2.5 MG, QW3
     Route: 058
  3. DESFERAL [Suspect]
     Dosage: 3 G/DAY X 3 TIMES A WEEK
     Route: 058
     Dates: start: 20040101, end: 20070101
  4. DESFERAL [Suspect]
     Dosage: 3 G/DAY X 5 TIMES A WEEK
     Route: 065
     Dates: start: 20070101

REACTIONS (6)
  - BLINDNESS [None]
  - CHORIORETINAL ATROPHY [None]
  - OPTIC NEURITIS [None]
  - OPTIC NEUROPATHY [None]
  - SCOTOMA [None]
  - VISUAL ACUITY REDUCED [None]
